FAERS Safety Report 10270236 (Version 1)
Quarter: 2014Q2

REPORT INFORMATION
  Report Type: Spontaneous
  Country: GB (occurrence: None)
  Receive Date: 20140627
  Receipt Date: 20140627
  Transmission Date: 20141212
  Serious: Yes (Other)
  Sender: FDA-Public Use
  Company Number: AUR-APL-2014-06736

PATIENT
  Age: 47 Year
  Sex: Female

DRUGS (1)
  1. CLARITHROMYCIN (CLARITHROMYCIN) UNKNOWN [Suspect]
     Indication: PRODUCT USED FOR UNKNOWN INDICATION
     Dates: start: 20140505

REACTIONS (3)
  - Dyspnoea [None]
  - Hypoaesthesia oral [None]
  - Local swelling [None]
